FAERS Safety Report 21562144 (Version 1)
Quarter: 2022Q4

REPORT INFORMATION
  Report Type: Other
  Country: None (occurrence: US)
  Receive Date: 20221107
  Receipt Date: 20221107
  Transmission Date: 20230113
  Serious: Yes (Other)
  Sender: FDA-Public Use
  Company Number: US-B.Braun Medical Inc.-2134598

PATIENT
  Age: 64 Year
  Sex: Male

DRUGS (6)
  1. LIDOCAINE HYDROCHLORIDE AND DEXTROSE [Suspect]
     Active Substance: DEXTROSE\LIDOCAINE HYDROCHLORIDE
  2. MEXILETINE [Suspect]
     Active Substance: MEXILETINE
  3. METOPROLOL [Suspect]
     Active Substance: METOPROLOL
  4. AMIODARONE [Suspect]
     Active Substance: AMIODARONE
  5. WARFARIN [Suspect]
     Active Substance: WARFARIN
  6. BUPIVACAINE [Concomitant]
     Active Substance: BUPIVACAINE

REACTIONS (1)
  - Drug ineffective [Unknown]
